FAERS Safety Report 5626901-4 (Version None)
Quarter: 2008Q1

REPORT INFORMATION
  Report Type: 
  Country: None (occurrence: None)
  Receive Date: 20080212
  Receipt Date: 20080130
  Transmission Date: 20080703
  Serious: Yes (Hospitalization)
  Sender: FDA-Public Use
  Company Number: GXKR2008US01118

PATIENT
  Age: 22 Year
  Sex: Female

DRUGS (8)
  1. PROCHLORPERAZINE [Suspect]
     Indication: NAUSEA
     Dosage: 10 MG, QD,
  2. PROMETHAZINE [Suspect]
     Indication: NAUSEA
     Dosage: 25 MG, QID,
  3. DROPERIDOL [Suspect]
     Indication: NAUSEA
  4. RANITIDINE [Concomitant]
  5. FLUOXETINE [Concomitant]
  6. TRAZODONE HCL [Concomitant]
  7. IRON SUPPLEMENTS (NO INGREDIENTS/SUBSTANCES) [Concomitant]
  8. HYDROCODONE BITARTRATE [Concomitant]

REACTIONS (28)
  - AKATHISIA [None]
  - ANXIETY [None]
  - BLOOD THYROID STIMULATING HORMONE DECREASED [None]
  - CRYING [None]
  - DEHYDRATION [None]
  - DELIVERY [None]
  - DEPRESSION [None]
  - DIZZINESS [None]
  - DRUG EXPOSURE DURING PREGNANCY [None]
  - DYSPNOEA [None]
  - FEELING ABNORMAL [None]
  - FEELING OF BODY TEMPERATURE CHANGE [None]
  - FLUSHING [None]
  - HYPERHIDROSIS [None]
  - HYPOTENSION [None]
  - KETONURIA [None]
  - LUMBAR VERTEBRAL FRACTURE [None]
  - MICROCYTIC ANAEMIA [None]
  - MOVEMENT DISORDER [None]
  - NAUSEA [None]
  - PALPITATIONS [None]
  - PULMONARY EMBOLISM [None]
  - RESTLESSNESS [None]
  - SELF INJURIOUS BEHAVIOUR [None]
  - SUICIDAL IDEATION [None]
  - TREATMENT NONCOMPLIANCE [None]
  - TREMOR [None]
  - VOMITING [None]
